FAERS Safety Report 17139633 (Version 1)
Quarter: 2019Q4

REPORT INFORMATION
  Report Type: Spontaneous
  Country: US (occurrence: US)
  Receive Date: 20191119
  Receipt Date: 20191119
  Transmission Date: 20200122
  Serious: Yes (Life-Threatening, Hospitalization)
  Sender: FDA-Public Use
  Company Number: None

PATIENT
  Age: 65 Year
  Sex: Male

DRUGS (2)
  1. ASPIRIN. [Suspect]
     Active Substance: ASPIRIN
     Indication: ANGIOPATHY
     Dates: end: 20190928
  2. WARFARIN [Suspect]
     Active Substance: WARFARIN
     Indication: ATRIAL FIBRILLATION
     Dates: start: 20140301, end: 20191014

REACTIONS (3)
  - Ulcer haemorrhage [None]
  - Gastric haemorrhage [None]
  - International normalised ratio increased [None]

NARRATIVE: CASE EVENT DATE: 20190928
